FAERS Safety Report 9317216 (Version 1)
Quarter: 2013Q2

REPORT INFORMATION
  Report Type: Spontaneous
  Country: US (occurrence: US)
  Receive Date: 20130530
  Receipt Date: 20130530
  Transmission Date: 20140414
  Serious: No
  Sender: FDA-Public Use
  Company Number: US-NOVEN-12US005116

PATIENT
  Age: 6 Year
  Sex: Male

DRUGS (2)
  1. DAYTRANA [Suspect]
     Indication: PRODUCT USED FOR UNKNOWN INDICATION
     Dosage: 30 MG, QD
     Route: 062
     Dates: start: 201208
  2. UNSPECIFIED SLEEP MEDICATION [Concomitant]
     Indication: INSOMNIA
     Route: 048

REACTIONS (2)
  - Application site erythema [Recovering/Resolving]
  - Application site irritation [Recovering/Resolving]
